FAERS Safety Report 22114987 (Version 1)
Quarter: 2023Q1

REPORT INFORMATION
  Report Type: Spontaneous
  Country: US (occurrence: None)
  Receive Date: 20230318
  Receipt Date: 20230318
  Transmission Date: 20230417
  Serious: No
  Sender: FDA-Public Use
  Company Number: None

PATIENT
  Sex: 0

DRUGS (2)
  1. CLARITIN-D 24 HOUR [Suspect]
     Active Substance: LORATADINE\PSEUDOEPHEDRINE SULFATE
     Indication: Sinus congestion
     Dosage: OTHER QUANTITY : 15 TABLET(S);?FREQUENCY : DAILY;?
     Route: 048
     Dates: start: 20230316, end: 20230318
  2. CLARITIN-D 24 HOUR [Suspect]
     Active Substance: LORATADINE\PSEUDOEPHEDRINE SULFATE
     Indication: Infection

REACTIONS (5)
  - Product substitution issue [None]
  - Adverse event [None]
  - Drug ineffective [None]
  - Wrong product stored [None]
  - Wrong product administered [None]

NARRATIVE: CASE EVENT DATE: 20230318
